FAERS Safety Report 16506514 (Version 1)
Quarter: 2019Q3

REPORT INFORMATION
  Report Type: Spontaneous
  Country: US (occurrence: US)
  Receive Date: 20190701
  Receipt Date: 20190701
  Transmission Date: 20191004
  Serious: No
  Sender: FDA-Public Use
  Company Number: US-INCYTE CORPORATION-2019IN006311

PATIENT

DRUGS (2)
  1. JAKAFI [Suspect]
     Active Substance: RUXOLITINIB
     Indication: MYELOPROLIFERATIVE NEOPLASM
     Dosage: 20 MILLIGRAM, BID
     Route: 048
     Dates: start: 20190531
  2. JAKAFI [Suspect]
     Active Substance: RUXOLITINIB
     Dosage: 20 MILLIGRAM, BID
     Route: 048

REACTIONS (12)
  - Pain [Unknown]
  - Feeding disorder [Unknown]
  - Lethargy [Unknown]
  - Confusional state [Unknown]
  - Night sweats [Unknown]
  - Off label use [Unknown]
  - Drug intolerance [Unknown]
  - Decreased activity [Unknown]
  - Loss of personal independence in daily activities [Unknown]
  - Splenomegaly [Unknown]
  - Product dose omission [Unknown]
  - Nausea [Unknown]
